FAERS Safety Report 15279536 (Version 1)
Quarter: 2018Q3

REPORT INFORMATION
  Report Type: Spontaneous
  Country: US (occurrence: US)
  Receive Date: 20180815
  Receipt Date: 20180815
  Transmission Date: 20181010
  Serious: No
  Sender: FDA-Public Use
  Company Number: US-PFIZER INC-2018326022

PATIENT
  Age: 60 Year
  Sex: Female

DRUGS (5)
  1. CODEINE [Suspect]
     Active Substance: CODEINE
     Dosage: UNK
  2. TETRACYCLINE HCL [Suspect]
     Active Substance: TETRACYCLINE HYDROCHLORIDE
     Dosage: UNK
  3. LYRICA [Concomitant]
     Active Substance: PREGABALIN
     Dosage: 150 MG, 2X/DAY (2 CAP BY MOUTH TWO TIMES PER DAY)
     Route: 048
     Dates: start: 20180808
  4. BUPROPION. [Suspect]
     Active Substance: BUPROPION
     Dosage: UNK
  5. HYDROCODONE?ACETAMINOPHEN [Suspect]
     Active Substance: ACETAMINOPHEN\HYDROCODONE
     Dosage: UNK

REACTIONS (1)
  - Drug hypersensitivity [Unknown]
